FAERS Safety Report 9547590 (Version 1)
Quarter: 2013Q3

REPORT INFORMATION
  Report Type: Spontaneous
  Country: GB (occurrence: GB)
  Receive Date: 20130924
  Receipt Date: 20130924
  Transmission Date: 20140515
  Serious: Yes (Life-Threatening, Hospitalization)
  Sender: FDA-Public Use
  Company Number: GB-ABBVIE-13P-167-1150540-00

PATIENT
  Age: 50 Year
  Sex: Female
  Weight: 60 kg

DRUGS (6)
  1. CLARITHROMYCIN [Suspect]
     Indication: PRODUCT USED FOR UNKNOWN INDICATION
     Dates: start: 20130909
  2. MEBEVERINE HYDROCHLORIDE [Concomitant]
     Indication: PRODUCT USED FOR UNKNOWN INDICATION
     Dates: start: 20130528, end: 20130723
  3. MEBEVERINE HYDROCHLORIDE [Concomitant]
     Dates: start: 20130820
  4. LEVOTHYROXINE [Concomitant]
     Indication: PRODUCT USED FOR UNKNOWN INDICATION
     Dates: start: 20130528, end: 20130816
  5. LEVOTHYROXINE [Concomitant]
     Dates: start: 20130820
  6. HYOSCINE BUTYLBROMIDE [Concomitant]
     Indication: PRODUCT USED FOR UNKNOWN INDICATION
     Dates: start: 20130909

REACTIONS (1)
  - Feeling of body temperature change [Recovered/Resolved]
